FAERS Safety Report 4691102-3 (Version None)
Quarter: 2005Q2

REPORT INFORMATION
  Report Type: 
  Country: None (occurrence: None)
  Receive Date: 20050610
  Receipt Date: 20050531
  Transmission Date: 20051028
  Serious: Yes (Hospitalization)
  Sender: FDA-Public Use
  Company Number: 2005071785

PATIENT
  Age: 73 Year
  Sex: Female

DRUGS (8)
  1. BEXTRA [Suspect]
     Indication: ARTHRITIS
     Dosage: 40 MG (1 IN 1 D), ORALQ
     Route: 048
     Dates: start: 20041201, end: 20050328
  2. BEXTRA [Suspect]
     Indication: OEDEMA PERIPHERAL
     Dosage: 40 MG (1 IN 1 D), ORALQ
     Route: 048
     Dates: start: 20041201, end: 20050328
  3. GARDENALE (PHENOBARBITAL SODIUM) [Concomitant]
  4. THEOPHYLLINE [Concomitant]
  5. FUROSEMIDE 9FUROSEMIDE) [Concomitant]
  6. POTASSIUM CHLORIDE [Concomitant]
  7. MELOXICAM [Concomitant]
  8. HIDANTAL (PHENYTOIN) [Concomitant]

REACTIONS (7)
  - BLOOD DISORDER [None]
  - CYSTITIS [None]
  - DIARRHOEA [None]
  - INFECTION [None]
  - PNEUMONIA [None]
  - POLLAKIURIA [None]
  - URINARY INCONTINENCE [None]
